FAERS Safety Report 7792157-X (Version None)
Quarter: 2011Q4

REPORT INFORMATION
  Report Type: 
  Country: None (occurrence: None)
  Receive Date: 20111003
  Receipt Date: 20111003
  Transmission Date: 20120403
  Serious: No
  Sender: FDA-Public Use
  Company Number: None

PATIENT
  Age: 59 Year
  Sex: Male

DRUGS (1)
  1. LOVENOX [Suspect]
     Dosage: 70
     Route: 058
     Dates: start: 20110916, end: 20110926

REACTIONS (1)
  - RETROPERITONEAL HAEMORRHAGE [None]
